FAERS Safety Report 14688263 (Version 1)
Quarter: 2018Q1

REPORT INFORMATION
  Report Type: Report from Study
  Country: CO (occurrence: CO)
  Receive Date: 20180328
  Receipt Date: 20180328
  Transmission Date: 20180509
  Serious: Yes (Death)
  Sender: FDA-Public Use
  Company Number: CO-ASTELLAS-2018US015178

PATIENT
  Age: 63 Year
  Sex: Male

DRUGS (2)
  1. TACROLIMUS. [Suspect]
     Active Substance: TACROLIMUS
     Indication: RENAL TRANSPLANT
     Dosage: 6 MG (5MG AND 1MG CAPSULE), ONCE DAILY
     Route: 065
     Dates: start: 20150224, end: 20180118
  2. TACROLIMUS. [Suspect]
     Active Substance: TACROLIMUS
     Indication: RENAL TRANSPLANT
     Dosage: 6 MG (5MG AND 1MG CAPSULE), ONCE DAILY
     Route: 065
     Dates: start: 20150224, end: 20180118

REACTIONS (2)
  - Cardio-respiratory arrest [Fatal]
  - Product supply issue [Unknown]

NARRATIVE: CASE EVENT DATE: 20180118
